FAERS Safety Report 7767816-5 (Version None)
Quarter: 2011Q3

REPORT INFORMATION
  Report Type: 
  Country: None (occurrence: None)
  Receive Date: 20110922
  Receipt Date: 20100913
  Transmission Date: 20111222
  Serious: No
  Sender: FDA-Public Use
  Company Number: US-ASTRAZENECA-2010SE40796

PATIENT
  Age: 31 Year
  Sex: Female
  Weight: 52.2 kg

DRUGS (6)
  1. SEROQUEL XR [Suspect]
     Route: 048
  2. KLONOPIN [Concomitant]
  3. REMERON [Concomitant]
  4. SEROQUEL XR [Suspect]
     Indication: BIPOLAR I DISORDER
     Route: 048
  5. SEROQUEL XR [Suspect]
     Indication: BIPOLAR DISORDER
     Route: 048
  6. SEROQUEL XR [Suspect]
     Route: 048

REACTIONS (5)
  - AGGRESSION [None]
  - ABDOMINAL DISCOMFORT [None]
  - DRUG DOSE OMISSION [None]
  - ANXIETY [None]
  - DEPRESSION [None]
